FAERS Safety Report 6645231-5 (Version None)
Quarter: 2010Q1

REPORT INFORMATION
  Report Type: 
  Country: None (occurrence: None)
  Receive Date: 20100318
  Receipt Date: 20100318
  Transmission Date: 20100710
  Serious: Yes (Other)
  Sender: FDA-Public Use
  Company Number: None

PATIENT
  Sex: Female

DRUGS (1)
  1. BUPROPION HCL [Suspect]
     Indication: DEPRESSION
     Dosage: 1 TAB DAILY PO
     Route: 048
     Dates: start: 20091221, end: 20100219

REACTIONS (3)
  - DEPRESSION [None]
  - DISEASE RECURRENCE [None]
  - PRODUCT SUBSTITUTION ISSUE [None]
